FAERS Safety Report 4823861-0 (Version None)
Quarter: 2005Q4

REPORT INFORMATION
  Report Type: 
  Country: None (occurrence: None)
  Receive Date: 20051109
  Receipt Date: 20051103
  Transmission Date: 20060501
  Serious: Yes (Hospitalization)
  Sender: FDA-Public Use
  Company Number: PHRM2005FR02888

PATIENT
  Age: 42 Year
  Sex: Male

DRUGS (6)
  1. LIORESAL [Suspect]
     Dosage: 15 MG, QD
     Route: 048
  2. TEGRETOL [Suspect]
     Dosage: 400 MG, QD
     Route: 048
  3. GARDENAL [Suspect]
     Dosage: 150 MG, QD
     Route: 048
  4. URBANYL [Suspect]
     Dosage: 40 MG, QD
     Route: 048
  5. LOXAPAC [Suspect]
     Dosage: 10 DF, DAILY
     Route: 048
  6. ATHYMIL [Suspect]
     Dosage: 30 MG, QD
     Route: 048

REACTIONS (3)
  - ABDOMINAL PAIN [None]
  - CONSTIPATION [None]
  - SUBILEUS [None]
